FAERS Safety Report 5751820-2 (Version None)
Quarter: 2008Q2

REPORT INFORMATION
  Report Type: 
  Country: None (occurrence: None)
  Receive Date: 20080527
  Receipt Date: 20080508
  Transmission Date: 20081010
  Serious: Yes (Death)
  Sender: FDA-Public Use
  Company Number: 2008AL004104

PATIENT
  Age: 62 Year
  Sex: Male
  Weight: 54.4316 kg

DRUGS (3)
  1. DIGOXIN [Suspect]
     Indication: CARDIAC DISORDER
  2. METFORMIN HCL [Concomitant]
  3. INSULIN [Concomitant]

REACTIONS (4)
  - HYPOTENSION [None]
  - MYOCARDIAL INFARCTION [None]
  - RENAL FAILURE [None]
  - VOMITING [None]
